FAERS Safety Report 8285880 (Version 2)
Quarter: 2012Q4

REPORT INFORMATION
  Report Type: 
  Country: US (occurrence: US)
  Receive Date: 20111213
  Receipt Date: 20121113
  Transmission Date: 20130627
  Serious: No
  Sender: FDA-Public Use
  Company Number: US-AMGEN-USASP2011028432

PATIENT
  Age: 20 Year
  Sex: Male

DRUGS (2)
  1. ARANESP [Suspect]
     Indication: HAEMOPHILIA
     Dosage: 50 mug, UNK
     Route: 023
  2. FACTOR VIII [Concomitant]
     Indication: COAGULOPATHY

REACTIONS (1)
  - Wrong drug administered [Unknown]
